FAERS Safety Report 11789047 (Version 1)
Quarter: 2015Q4

REPORT INFORMATION
  Report Type: Report from Study
  Country: US (occurrence: US)
  Receive Date: 20151201
  Receipt Date: 20151201
  Transmission Date: 20160305
  Serious: Yes (Other)
  Sender: FDA-Public Use
  Company Number: US-009507513-1511USA012125

PATIENT
  Age: 50 Year
  Sex: Male
  Weight: 65 kg

DRUGS (14)
  1. LISINOPRIL. [Suspect]
     Active Substance: LISINOPRIL
     Indication: HYPERTENSION
     Dosage: 10 MG, QD
     Route: 048
     Dates: start: 2011, end: 20150615
  2. PF-04950615 [Suspect]
     Active Substance: BOCOCIZUMAB
     Indication: HYPERLIPIDAEMIA
     Dosage: UNK
     Dates: start: 20141222
  3. PROVENTIL [Concomitant]
     Active Substance: ALBUTEROL
     Indication: CROHN^S DISEASE
     Dosage: 90 UG AS NEEDED
     Route: 055
     Dates: start: 2010
  4. AZULFIDINE [Concomitant]
     Active Substance: SULFASALAZINE
     Dosage: 2000 MG, BID
     Route: 048
     Dates: start: 20150528
  5. PLAVIX [Concomitant]
     Active Substance: CLOPIDOGREL BISULFATE
     Indication: CARDIOVASCULAR EVENT PROPHYLAXIS
     Dosage: UNK
     Dates: start: 2010
  6. BENTYL [Concomitant]
     Active Substance: DICYCLOMINE HYDROCHLORIDE
     Indication: CROHN^S DISEASE
     Dosage: 20 MG, QID
     Route: 048
     Dates: start: 2001
  7. DELZICOL [Concomitant]
     Active Substance: MESALAMINE
     Indication: CROHN^S DISEASE
     Dosage: 400 MG, QID
     Route: 048
     Dates: start: 2001
  8. PROTONIX [Concomitant]
     Active Substance: PANTOPRAZOLE SODIUM
     Indication: GASTROOESOPHAGEAL REFLUX DISEASE
     Dosage: 40 MG, QID
     Dates: start: 2010
  9. CELEXA [Concomitant]
     Active Substance: CITALOPRAM HYDROBROMIDE
     Indication: ANXIETY
     Dosage: 40 MG, ONCE A DAY
     Route: 048
     Dates: start: 2011
  10. CORTENEMA [Concomitant]
     Active Substance: HYDROCORTISONE
     Indication: ASTHMA
     Dosage: 100 MG, QD
     Route: 054
     Dates: start: 20150601, end: 20150804
  11. ZOCOR [Concomitant]
     Active Substance: SIMVASTATIN
     Indication: HYPERLIPIDAEMIA
     Dosage: QD
     Route: 048
     Dates: start: 2010
  12. ATIVAN [Concomitant]
     Active Substance: LORAZEPAM
     Indication: ANXIETY
     Dosage: 0.5 MG, QID
     Dates: start: 2011
  13. VISTARIL [Concomitant]
     Active Substance: HYDROXYZINE PAMOATE
     Indication: ANXIETY
     Dosage: 50 MG AS NEEDED (UP TO FOUR TIMES A DAY)
     Route: 048
     Dates: start: 2011
  14. LOPRESSOR [Concomitant]
     Active Substance: METOPROLOL TARTRATE
     Indication: HYPERTENSION
     Dosage: 12.5 MG, BID

REACTIONS (1)
  - Angioedema [Recovered/Resolved]

NARRATIVE: CASE EVENT DATE: 20150608
